FAERS Safety Report 6710483-X (Version None)
Quarter: 2010Q2

REPORT INFORMATION
  Report Type: 
  Country: None (occurrence: None)
  Receive Date: 20100430
  Receipt Date: 20100426
  Transmission Date: 20101027
  Serious: Yes (Hospitalization)
  Sender: FDA-Public Use
  Company Number: 2010JP002512

PATIENT
  Sex: Male

DRUGS (4)
  1. VESICARE [Suspect]
     Indication: HYPERTONIC BLADDER
     Dosage: 10 MG, /D, ORAL
     Route: 048
     Dates: start: 20090301, end: 20100401
  2. IMATINIB MESYLATE [Suspect]
     Indication: GASTROINTESTINAL STROMAL TUMOUR
     Dosage: 800 G, /D, ORAL; 600 MG. /D, ORAL
     Route: 048
     Dates: start: 20100304, end: 20100411
  3. IMATINIB MESYLATE [Suspect]
     Indication: GASTROINTESTINAL STROMAL TUMOUR
     Dosage: 800 G, /D, ORAL; 600 MG. /D, ORAL
     Route: 048
     Dates: start: 20100412
  4. TAMSULOSIN HCL [Concomitant]

REACTIONS (1)
  - BLOOD CHOLINESTERASE DECREASED [None]
